FAERS Safety Report 16405222 (Version 1)
Quarter: 2019Q2

REPORT INFORMATION
  Report Type: Spontaneous
  Country: CO (occurrence: CO)
  Receive Date: 20190607
  Receipt Date: 20190607
  Transmission Date: 20190711
  Serious: Yes (Death)
  Sender: FDA-Public Use
  Company Number: CO-CELGENEUS-COL-20190511843

PATIENT
  Age: 64 Year
  Sex: Male

DRUGS (1)
  1. VIDAZA [Suspect]
     Active Substance: AZACITIDINE
     Indication: ACUTE MYELOID LEUKAEMIA
     Dosage: 100 MILLIGRAM
     Route: 058
     Dates: start: 20170704, end: 20180920

REACTIONS (1)
  - Death [Fatal]

NARRATIVE: CASE EVENT DATE: 20190310
